FAERS Safety Report 19680369 (Version 1)
Quarter: 2021Q3

REPORT INFORMATION
  Report Type: Spontaneous
  Country: US (occurrence: US)
  Receive Date: 20210810
  Receipt Date: 20210810
  Transmission Date: 20211014
  Serious: Yes (Life-Threatening, Hospitalization, Disabling, Other)
  Sender: FDA-Public Use
  Company Number: None

PATIENT
  Age: 43 Year
  Sex: Female
  Weight: 60.75 kg

DRUGS (6)
  1. IRON [Concomitant]
     Active Substance: IRON
  2. FOLIC ACID. [Concomitant]
     Active Substance: FOLIC ACID
  3. CIPRO [Suspect]
     Active Substance: CIPROFLOXACIN HYDROCHLORIDE
  4. VITAMIN D3 [Concomitant]
     Active Substance: CHOLECALCIFEROL
  5. LEVAQUIN [Suspect]
     Active Substance: LEVOFLOXACIN
     Indication: SINUSITIS
     Route: 048
     Dates: start: 20090603, end: 20090604
  6. VITAMIN B12 [Concomitant]
     Active Substance: CYANOCOBALAMIN

REACTIONS (8)
  - Feeling abnormal [None]
  - Foot fracture [None]
  - Lethargy [None]
  - Fall [None]
  - Condition aggravated [None]
  - Dizziness [None]
  - Blood test abnormal [None]
  - Haemoglobin decreased [None]

NARRATIVE: CASE EVENT DATE: 20090604
